FAERS Safety Report 4681844-8 (Version None)
Quarter: 2005Q2

REPORT INFORMATION
  Report Type: 
  Country: None (occurrence: None)
  Receive Date: 20050602
  Receipt Date: 20050513
  Transmission Date: 20051028
  Serious: Yes (Hospitalization)
  Sender: FDA-Public Use
  Company Number: DE_050415706

PATIENT
  Age: 10 Year
  Sex: Male
  Weight: 31.7518 kg

DRUGS (13)
  1. STRATTERA [Suspect]
     Indication: ATTENTION DEFICIT/HYPERACTIVITY DISORDER
     Dosage: 40 MG DAY
     Dates: start: 20050223
  2. MIDAZOLAM HCL [Concomitant]
  3. PROPOFOL [Concomitant]
  4. FENTANYL [Concomitant]
  5. ESMERON (ROCURONIUM BROMIDE) [Concomitant]
  6. SEVORANE (SEVOFLURANE) [Concomitant]
  7. CEFUROXIME [Concomitant]
  8. TUTOFUSIN [Concomitant]
  9. NOVALGIN (METAMIZOLE SODIUM MONOHYDRATE) [Concomitant]
  10. IBUPROFEN [Concomitant]
  11. PARCETAMOL [Concomitant]
  12. SAB SIMPLEX (DIMETICONE) [Concomitant]
  13. DIPIDOLOR (PIRITRAMIDE) [Concomitant]

REACTIONS (1)
  - APPENDICITIS [None]
